FAERS Safety Report 4470790-0 (Version None)
Quarter: 2004Q4

REPORT INFORMATION
  Report Type: 
  Country: None (occurrence: None)
  Receive Date: 20041006
  Receipt Date: 20040930
  Transmission Date: 20050328
  Serious: Yes (Life-Threatening, Hospitalization, Other)
  Sender: FDA-Public Use
  Company Number: FRWYE079030SEP04

PATIENT
  Age: 92 Year
  Sex: Female

DRUGS (4)
  1. OXAZEPAM [Suspect]
     Indication: DEPRESSION
     Dosage: 25 MG 1X PER 1 DAY ORAL
     Route: 048
     Dates: start: 20040701, end: 20040715
  2. PAROXETINE HCL [Suspect]
     Indication: DEPRESSION
     Dosage: 20 MG 1X PER 1 DAY ORAL
     Route: 048
     Dates: start: 20040701, end: 20040715
  3. EQUANIL [Suspect]
     Indication: DEPRESSION
     Dosage: 500 MG 1X PER 1 DAY ORAL
     Route: 048
     Dates: start: 20040701, end: 20040715
  4. ECAZIDE (CAPTOPRIL/HYDROCHLOROTHIAZIDE) [Concomitant]

REACTIONS (1)
  - THROMBOCYTOPENIA [None]
